FAERS Safety Report 22291247 (Version 2)
Quarter: 2023Q2

REPORT INFORMATION
  Report Type: Report from Study
  Country: US (occurrence: US)
  Receive Date: 20230506
  Receipt Date: 20230608
  Transmission Date: 20230722
  Serious: No
  Sender: FDA-Public Use
  Company Number: US-002147023-NVSC2023US101823

PATIENT
  Age: 75 Year
  Sex: Female

DRUGS (1)
  1. LEQVIO [Suspect]
     Active Substance: INCLISIRAN SODIUM
     Indication: Product used for unknown indication
     Dosage: UNK
     Route: 058
     Dates: start: 20230425

REACTIONS (8)
  - Neck pain [Not Recovered/Not Resolved]
  - Pain in extremity [Not Recovered/Not Resolved]
  - Muscle spasms [Not Recovered/Not Resolved]
  - Fatigue [Unknown]
  - Ear pain [Unknown]
  - Lymphadenopathy [Unknown]
  - Hypoaesthesia [Unknown]
  - Arthralgia [Unknown]

NARRATIVE: CASE EVENT DATE: 20230401
